FAERS Safety Report 14419895 (Version 5)
Quarter: 2020Q3

REPORT INFORMATION
  Report Type: Report from Study
  Country: US (occurrence: US)
  Receive Date: 20180122
  Receipt Date: 20200928
  Transmission Date: 20201102
  Serious: Yes (Hospitalization)
  Sender: FDA-Public Use
  Company Number: US-BAUSCH-BL-2018-001548

PATIENT
  Age: 57 Year
  Sex: Female
  Weight: 63.56 kg

DRUGS (7)
  1. GLIMEPIRIDE. [Concomitant]
     Active Substance: GLIMEPIRIDE
     Indication: PRODUCT USED FOR UNKNOWN INDICATION
     Route: 048
  2. LYRICA [Concomitant]
     Active Substance: PREGABALIN
     Indication: PRODUCT USED FOR UNKNOWN INDICATION
     Route: 048
  3. MORPHINE SULFATE. [Concomitant]
     Active Substance: MORPHINE SULFATE
     Indication: PRODUCT USED FOR UNKNOWN INDICATION
     Route: 048
  4. XIFAXAN [Suspect]
     Active Substance: RIFAXIMIN
     Route: 048
     Dates: end: 20200912
  5. LEVOTHYROXINE. [Concomitant]
     Active Substance: LEVOTHYROXINE
     Indication: PRODUCT USED FOR UNKNOWN INDICATION
     Route: 048
  6. XIFAXAN [Suspect]
     Active Substance: RIFAXIMIN
     Indication: HEPATIC ENCEPHALOPATHY
     Route: 048
     Dates: end: 2017
  7. XIFAXAN [Suspect]
     Active Substance: RIFAXIMIN
     Dosage: STARTED IN NOVEMBER 2017 OR DECEMBER 2017
     Route: 048
     Dates: start: 2017, end: 201811

REACTIONS (10)
  - Vomiting [Unknown]
  - Abdominal pain upper [Unknown]
  - Product prescribing error [Unknown]
  - Hospitalisation [Unknown]
  - Confusional state [Unknown]
  - Headache [Unknown]
  - Insurance issue [Unknown]
  - Dyskinesia [Unknown]
  - Tremor [Unknown]
  - Therapy interrupted [Unknown]
